FAERS Safety Report 4546440-1 (Version None)
Quarter: 2005Q1

REPORT INFORMATION
  Report Type: 
  Country: None (occurrence: None)
  Receive Date: 20050105
  Receipt Date: 20041221
  Transmission Date: 20050727
  Serious: Yes (Death, Hospitalization)
  Sender: FDA-Public Use
  Company Number: 2004AL000599

PATIENT
  Age: 36 Year
  Sex: Female

DRUGS (8)
  1. ACETAMINOPHEN [Suspect]
     Dosage: PO
     Route: 048
  2. ACETAMINOPHEN [Suspect]
     Dosage: PO
     Route: 048
  3. ATENOLOL [Suspect]
     Dosage: PO
     Route: 048
  4. CHLORDIAZEPOXIDE [Suspect]
     Dosage: PO
     Route: 048
  5. ROFECOXIB [Suspect]
     Dosage: PO
     Route: 048
  6. TRAMADOL HCL [Suspect]
     Dosage: PO
     Route: 048
  7. CARISOPRODOL [Suspect]
     Dosage: PO
     Route: 048
  8. PAROXETINE HCL [Suspect]
     Dosage: PO
     Route: 048

REACTIONS (14)
  - ACIDOSIS [None]
  - ALANINE AMINOTRANSFERASE INCREASED [None]
  - ASPARTATE AMINOTRANSFERASE INCREASED [None]
  - BLOOD GLUCOSE DECREASED [None]
  - BLOOD PH DECREASED [None]
  - CARDIO-RESPIRATORY ARREST [None]
  - COMA [None]
  - COMPLETED SUICIDE [None]
  - HEART RATE DECREASED [None]
  - HYPOTENSION [None]
  - INTERNATIONAL NORMALISED RATIO INCREASED [None]
  - MULTIPLE DRUG OVERDOSE [None]
  - OXYGEN SATURATION DECREASED [None]
  - PUPIL FIXED [None]
